FAERS Safety Report 9149876 (Version 1)
Quarter: 2013Q1

REPORT INFORMATION
  Report Type: Spontaneous
  Country: US (occurrence: US)
  Receive Date: 20130308
  Receipt Date: 20130308
  Transmission Date: 20140127
  Serious: No
  Sender: FDA-Public Use
  Company Number: US-ENDO PHARMACEUTICALS INC.-OPCR20120910

PATIENT
  Sex: Female
  Weight: 63.56 kg

DRUGS (3)
  1. OPANA ER 30MG [Suspect]
     Indication: BACK PAIN
     Route: 048
     Dates: start: 2012, end: 201203
  2. OPANA ER 30MG [Suspect]
     Indication: PAIN
     Route: 048
     Dates: start: 2012, end: 2012
  3. OPANA ER 30MG [Concomitant]
     Indication: BACK PAIN
     Route: 048
     Dates: start: 201011, end: 2012

REACTIONS (2)
  - Bronchospasm [Recovered/Resolved]
  - Asthma [Recovered/Resolved]
